FAERS Safety Report 9729735 (Version 2)
Quarter: 2015Q3

REPORT INFORMATION
  Report Type: Spontaneous
  Country: US (occurrence: US)
  Receive Date: 20131204
  Receipt Date: 20150804
  Transmission Date: 20151125
  Serious: No
  Sender: FDA-Public Use
  Company Number: US-GILEAD-2009-0021898

PATIENT
  Age: 63 Year
  Sex: Female
  Weight: 104.78 kg

DRUGS (13)
  1. NOVOLIN 70/30 [Concomitant]
     Active Substance: INSULIN HUMAN
  2. AMARYL [Concomitant]
     Active Substance: GLIMEPIRIDE
  3. NEXIUM [Concomitant]
     Active Substance: ESOMEPRAZOLE MAGNESIUM
  4. NEURONTIN [Concomitant]
     Active Substance: GABAPENTIN
  5. RESTORIL [Concomitant]
     Active Substance: TEMAZEPAM
  6. FISH OIL [Concomitant]
     Active Substance: FISH OIL
  7. VITAMIN B-6 [Concomitant]
     Active Substance: PYRIDOXINE
  8. GLUCOPHAGE [Concomitant]
     Active Substance: METFORMIN HYDROCHLORIDE
  9. PRINIVIL [Concomitant]
     Active Substance: LISINOPRIL
  10. VITAMIN E [Concomitant]
     Active Substance: .ALPHA.-TOCOPHEROL
  11. ASPIRIN. [Concomitant]
     Active Substance: ASPIRIN
  12. LETAIRIS [Suspect]
     Active Substance: AMBRISENTAN
     Indication: PULMONARY ARTERIAL HYPERTENSION
     Route: 048
     Dates: start: 20090112
  13. LASIX [Concomitant]
     Active Substance: FUROSEMIDE

REACTIONS (1)
  - Hot flush [Not Recovered/Not Resolved]
